FAERS Safety Report 5905091-4 (Version None)
Quarter: 2008Q3

REPORT INFORMATION
  Report Type: 
  Country: None (occurrence: None)
  Receive Date: 20080909
  Receipt Date: 20071105
  Transmission Date: 20090109
  Serious: Yes (Other)
  Sender: FDA-Public Use
  Company Number: 163-20785-07110283

PATIENT
  Age: 65 Year
  Sex: Female

DRUGS (2)
  1. THALOMID [Suspect]
     Dosage: 200 MG, 4 IN 1 D, ORAL ; 200-100MG, DAILY, ORAL
     Route: 048
     Dates: start: 20040302, end: 20040401
  2. THALOMID [Suspect]
     Dosage: 200 MG, 4 IN 1 D, ORAL ; 200-100MG, DAILY, ORAL
     Route: 048
     Dates: start: 20070518

REACTIONS (2)
  - DYSPNOEA [None]
  - THROMBOSIS [None]
